FAERS Safety Report 24271180 (Version 3)
Quarter: 2024Q4

REPORT INFORMATION
  Report Type: Spontaneous
  Country: US (occurrence: US)
  Receive Date: 20240831
  Receipt Date: 20241008
  Transmission Date: 20250114
  Serious: No
  Sender: GLAXOSMITHKLINE
  Company Number: US-GSK-US2024AMR104998

PATIENT
  Age: 25 Year
  Sex: Female

DRUGS (3)
  1. BENLYSTA [Suspect]
     Active Substance: BELIMUMAB
     Indication: Antiphospholipid syndrome
     Dosage: 200 MG, WE
     Route: 058
  2. BENLYSTA [Suspect]
     Active Substance: BELIMUMAB
     Indication: Systemic lupus erythematosus
  3. BENLYSTA [Suspect]
     Active Substance: BELIMUMAB
     Indication: Antiphospholipid syndrome
     Dosage: 200 MG/ML, WE
     Route: 058

REACTIONS (4)
  - Device difficult to use [Unknown]
  - Product dose omission issue [Unknown]
  - Product use in unapproved indication [Unknown]
  - Accidental exposure to product [Unknown]

NARRATIVE: CASE EVENT DATE: 20240906
